FAERS Safety Report 7328424-3 (Version None)
Quarter: 2011Q1

REPORT INFORMATION
  Report Type: 
  Country: None (occurrence: None)
  Receive Date: 20110303
  Receipt Date: 20110223
  Transmission Date: 20110831
  Serious: Yes (Other)
  Sender: FDA-Public Use
  Company Number: US-SANOFI-AVENTIS-2011SA007065

PATIENT
  Age: 63 Year
  Sex: Male

DRUGS (4)
  1. SOLOSTAR [Suspect]
     Dates: start: 20100301
  2. LANTUS [Suspect]
     Indication: TYPE 2 DIABETES MELLITUS
     Dosage: DOSE:75 UNIT(S)
     Route: 058
     Dates: start: 20100301
  3. LANTUS [Suspect]
     Dosage: DOSE:75 UNIT(S)
     Route: 058
     Dates: start: 20100301
  4. SOLOSTAR [Suspect]
     Dates: start: 20100301

REACTIONS (4)
  - INJECTION SITE PAIN [None]
  - MYOCARDIAL INFARCTION [None]
  - INTESTINAL FUNCTIONAL DISORDER [None]
  - INJECTION SITE HAEMATOMA [None]
